FAERS Safety Report 10390558 (Version 2)
Quarter: 2014Q3

REPORT INFORMATION
  Report Type: Spontaneous
  Country: US (occurrence: US)
  Receive Date: 20140818
  Receipt Date: 20140924
  Transmission Date: 20150326
  Serious: No
  Sender: FDA-Public Use
  Company Number: US-TEVA-502738USA

PATIENT
  Age: 25 Year
  Sex: Female
  Weight: 74 kg

DRUGS (6)
  1. PARAGARD T380A [Suspect]
     Active Substance: COPPER
     Indication: POST COITAL CONTRACEPTION
     Route: 015
     Dates: start: 20140708, end: 20140812
  2. IRON SUPPLEMENT [Concomitant]
     Active Substance: IRON
     Indication: MINERAL SUPPLEMENTATION
  3. PRILOSEC [Concomitant]
     Active Substance: OMEPRAZOLE MAGNESIUM
     Indication: GASTROOESOPHAGEAL REFLUX DISEASE
  4. PRENATAL VITAMINS [Concomitant]
     Active Substance: VITAMINS
     Indication: VITAMIN SUPPLEMENTATION
  5. VITAMIN C [Concomitant]
     Active Substance: ASCORBIC ACID
     Indication: VITAMIN SUPPLEMENTATION
  6. XARELTO [Concomitant]
     Active Substance: RIVAROXABAN
     Indication: DEEP VEIN THROMBOSIS

REACTIONS (2)
  - Device expulsion [Recovered/Resolved]
  - Dysmenorrhoea [Recovered/Resolved]

NARRATIVE: CASE EVENT DATE: 20140708
